FAERS Safety Report 15666480 (Version 1)
Quarter: 2018Q4

REPORT INFORMATION
  Report Type: Spontaneous
  Country: US (occurrence: US)
  Receive Date: 20181128
  Receipt Date: 20181128
  Transmission Date: 20190205
  Serious: No
  Sender: FDA-Public Use
  Company Number: US-ROCHE-2102524

PATIENT
  Age: 52 Year
  Sex: Male
  Weight: 86.26 kg

DRUGS (5)
  1. ALEVE [Concomitant]
     Active Substance: NAPROXEN SODIUM
     Indication: PAIN
     Route: 065
  2. OCREVUS [Suspect]
     Active Substance: OCRELIZUMAB
     Indication: MULTIPLE SCLEROSIS
     Route: 065
     Dates: start: 201802
  3. HORNY GOAT WEED [Concomitant]
     Dosage: IN PLACE OF TADALAFIL AS REQUIRED
     Route: 065
  4. MOTRIN [Concomitant]
     Active Substance: IBUPROFEN
     Indication: PAIN
     Dosage: ONGOING: YES
     Route: 065
  5. CIALIS [Concomitant]
     Active Substance: TADALAFIL
     Dosage: DID NOT WORK. SO, HE WAS USING (GENEX) AND HORNY GOAT WEED IN PLACE OF IT
     Route: 065

REACTIONS (5)
  - Loss of libido [Not Recovered/Not Resolved]
  - Asthenia [Not Recovered/Not Resolved]
  - Palpitations [Not Recovered/Not Resolved]
  - Fatigue [Not Recovered/Not Resolved]
  - Insomnia [Not Recovered/Not Resolved]

NARRATIVE: CASE EVENT DATE: 201803
